FAERS Safety Report 9861997 (Version 1)
Quarter: 2014Q1

REPORT INFORMATION
  Report Type: Spontaneous
  Country: US (occurrence: None)
  Receive Date: 20140130
  Receipt Date: 20140130
  Transmission Date: 20141002
  Serious: Yes (Death)
  Sender: FDA-Public Use
  Company Number: 2014AP000926

PATIENT
  Age: 73 Year
  Sex: Female
  Weight: 58 kg

DRUGS (5)
  1. FERRIPROX (500 MG) [Suspect]
     Indication: HAEMOCHROMATOSIS
     Dosage: 77 MG/KG; QD; PO
     Route: 048
     Dates: start: 20120215, end: 20131217
  2. TYLENOL [Concomitant]
  3. HYDROMORPHONE [Concomitant]
  4. DULCOLAX [Concomitant]
  5. INSULIN NOVOLIN [Concomitant]

REACTIONS (2)
  - Gastric cancer [None]
  - Metastases to liver [None]
